FAERS Safety Report 14378388 (Version 1)
Quarter: 2018Q1

REPORT INFORMATION
  Report Type: Spontaneous
  Country: US (occurrence: US)
  Receive Date: 20180111
  Receipt Date: 20180111
  Transmission Date: 20180509
  Serious: Yes (Other)
  Sender: FDA-Public Use
  Company Number: US-SA-2018SA005061

PATIENT
  Sex: Male

DRUGS (1)
  1. LANTUS [Suspect]
     Active Substance: INSULIN GLARGINE
     Route: 051

REACTIONS (5)
  - Staphylococcal infection [Unknown]
  - Thrombosis [Unknown]
  - Localised infection [Unknown]
  - Angiopathy [Unknown]
  - Blood glucose increased [Unknown]
